FAERS Safety Report 7108975-7 (Version None)
Quarter: 2010Q4

REPORT INFORMATION
  Report Type: 
  Country: None (occurrence: None)
  Receive Date: 20101117
  Receipt Date: 20101110
  Transmission Date: 20110411
  Serious: Yes (Hospitalization)
  Sender: FDA-Public Use
  Company Number: PHHO2009US08862

PATIENT
  Sex: Male
  Weight: 82.6 kg

DRUGS (7)
  1. AMN107 AMN+CAP [Suspect]
     Indication: CHRONIC MYELOID LEUKAEMIA
     Dosage: 400 MG, QD
     Route: 048
     Dates: start: 20080407, end: 20090713
  2. AMN107 AMN+CAP [Suspect]
     Dosage: UNK
     Route: 048
     Dates: start: 20090714, end: 20090730
  3. AMN107 AMN+CAP [Suspect]
     Dosage: 400 MG, QD
     Route: 048
     Dates: start: 20090731, end: 20101103
  4. AMN107 AMN+CAP [Suspect]
     Dosage: 400 MG, QD
     Dates: start: 20101106
  5. TAMOL [Concomitant]
  6. PRAVASTATIN SODIUM [Concomitant]
  7. PLAVIX [Concomitant]

REACTIONS (5)
  - ANGINA PECTORIS [None]
  - CATHETERISATION CARDIAC [None]
  - DYSPNOEA [None]
  - PERCUTANEOUS CORONARY INTERVENTION [None]
  - STENT PLACEMENT [None]
